FAERS Safety Report 4697616-4 (Version None)
Quarter: 2005Q2

REPORT INFORMATION
  Report Type: 
  Country: None (occurrence: None)
  Receive Date: 20050620
  Receipt Date: 20050512
  Transmission Date: 20051028
  Serious: No
  Sender: FDA-Public Use
  Company Number: US-YAMANOUCHI-YPA20050260

PATIENT
  Age: 48 Year
  Sex: Female
  Weight: 88.4514 kg

DRUGS (4)
  1. VESICARE [Suspect]
     Indication: AUTOMATIC BLADDER
     Dosage: 5 MG QD PO
     Route: 048
     Dates: start: 20050509
  2. VESICARE [Suspect]
     Indication: HYPERTONIC BLADDER
     Dosage: 5 MG QD PO
     Route: 048
     Dates: start: 20050509
  3. DIOVAN [Concomitant]
  4. DETROL - SLOW RELEASE [Concomitant]

REACTIONS (4)
  - BURNING SENSATION [None]
  - RASH [None]
  - RASH PAPULAR [None]
  - VISION BLURRED [None]
